FAERS Safety Report 11856837 (Version 1)
Quarter: 2015Q4

REPORT INFORMATION
  Report Type: Spontaneous
  Country: RO (occurrence: RO)
  Receive Date: 20151221
  Receipt Date: 20151221
  Transmission Date: 20160305
  Serious: Yes (Hospitalization)
  Sender: FDA-Public Use
  Company Number: RO-FRESENIUS KABI-FK201506697

PATIENT
  Sex: Female

DRUGS (6)
  1. FLUOROURACIL (MANUFACTURER UNKNOWN) [Suspect]
     Active Substance: FLUOROURACIL
     Indication: METASTASES TO LUNG
     Route: 065
     Dates: start: 201401, end: 201408
  2. EPIRUBICIN (MANUFACTURER UNKNOWN) [Suspect]
     Active Substance: EPIRUBICIN
     Indication: METASTASES TO LUNG
     Route: 065
     Dates: start: 201401, end: 201408
  3. DOCETAXEL (MANUFACTURER UNKNOWN) [Suspect]
     Active Substance: DOCETAXEL
     Indication: METASTASES TO LUNG
     Route: 065
     Dates: start: 201401, end: 201408
  4. CYCLOPHOSPHAMIDE. [Suspect]
     Active Substance: CYCLOPHOSPHAMIDE
     Indication: METASTASES TO LUNG
     Dates: start: 201401, end: 201408
  5. CYCLOPHOSPHAMIDE. [Suspect]
     Active Substance: CYCLOPHOSPHAMIDE
  6. DOXORUBICIN [Suspect]
     Active Substance: DOXORUBICIN
     Indication: METASTASES TO LUNG
     Dates: start: 201401, end: 201408

REACTIONS (1)
  - Cardiac failure [Recovered/Resolved]
